FAERS Safety Report 8965535 (Version 1)
Quarter: 2012Q4

REPORT INFORMATION
  Report Type: Spontaneous
  Country: DK (occurrence: None)
  Receive Date: 20121205
  Receipt Date: 20121205
  Transmission Date: 20130627
  Serious: Yes (Hospitalization)
  Sender: FDA-Public Use
  Company Number: 2012MA013758

PATIENT
  Age: 66 Year
  Sex: Male

DRUGS (9)
  1. RAMIPRIL [Suspect]
     Indication: MYOCARDIAL INFARCTION PROPHYLAXIS
     Route: 048
  2. PLACEBO [Concomitant]
  3. ATORVASTATIN [Concomitant]
  4. OMEPRAZOLE [Concomitant]
  5. CITALOPRAM [Concomitant]
  6. BISOPROLOL [Concomitant]
  7. ASA [Concomitant]
  8. EVEROLIMUS [Concomitant]
  9. PRASUGREL [Concomitant]

REACTIONS (2)
  - Dyspnoea at rest [None]
  - Pneumonia [None]
